FAERS Safety Report 7892399-9 (Version None)
Quarter: 2011Q4

REPORT INFORMATION
  Report Type: 
  Country: None (occurrence: None)
  Receive Date: 20111104
  Receipt Date: 20111027
  Transmission Date: 20120403
  Serious: Yes (Hospitalization)
  Sender: FDA-Public Use
  Company Number: US-JNJFOC-20111012480

PATIENT
  Age: 57 Year
  Sex: Female
  Weight: 63.96 kg

DRUGS (8)
  1. OXYCONTIN [Concomitant]
  2. CALCIUM CARBONATE [Concomitant]
  3. COLACE [Concomitant]
  4. PROZAC [Concomitant]
  5. SYNTHROID [Concomitant]
  6. XARELTO [Suspect]
     Indication: THROMBOSIS PROPHYLAXIS
     Route: 048
     Dates: start: 20111011
  7. VITAMIN D [Concomitant]
  8. PERCOCET [Concomitant]

REACTIONS (1)
  - PULMONARY EMBOLISM [None]
